FAERS Safety Report 17450715 (Version 1)
Quarter: 2020Q1

REPORT INFORMATION
  Report Type: Report from Study
  Country: BR (occurrence: BR)
  Receive Date: 20200224
  Receipt Date: 20200224
  Transmission Date: 20200409
  Serious: Yes (Other)
  Sender: FDA-Public Use
  Company Number: BR-BRISTOL-MYERS SQUIBB COMPANY-BMS-2016-055113

PATIENT
  Age: 53 Year
  Sex: Female

DRUGS (1)
  1. ABATACEPT [Suspect]
     Active Substance: ABATACEPT
     Indication: RHEUMATOID ARTHRITIS
     Dosage: UNK, QMO
     Route: 042

REACTIONS (9)
  - Influenza [Recovering/Resolving]
  - Pain [Not Recovered/Not Resolved]
  - Immunodeficiency [Not Recovered/Not Resolved]
  - Cough [Recovering/Resolving]
  - Dysphonia [Recovering/Resolving]
  - Anaemia [Recovering/Resolving]
  - Bone pain [Not Recovered/Not Resolved]
  - Pyrexia [Unknown]
  - Asthenia [Recovering/Resolving]

NARRATIVE: CASE EVENT DATE: 201606
